FAERS Safety Report 7936448-8 (Version None)
Quarter: 2011Q4

REPORT INFORMATION
  Report Type: 
  Country: None (occurrence: None)
  Receive Date: 20111121
  Receipt Date: 20111107
  Transmission Date: 20120403
  Serious: Yes (Other)
  Sender: FDA-Public Use
  Company Number: PHHY2011JP95083

PATIENT
  Age: 72 Year
  Sex: Female

DRUGS (2)
  1. VISUDYNE [Suspect]
     Indication: POLYPOIDAL CHOROIDAL VASCULOPATHY
     Dates: start: 20090701, end: 20090701
  2. RANIBIZUMAB [Suspect]
     Indication: POLYPOIDAL CHOROIDAL VASCULOPATHY
     Dosage: 0.05 ML ONCE EY
     Dates: start: 20090701, end: 20090701

REACTIONS (1)
  - RETINAL DETACHMENT [None]
